FAERS Safety Report 22000263 (Version 9)
Quarter: 2024Q4

REPORT INFORMATION
  Report Type: Spontaneous
  Country: US (occurrence: US)
  Receive Date: 20230216
  Receipt Date: 20241208
  Transmission Date: 20250115
  Serious: Yes (Disabling, Other)
  Sender: AMGEN
  Company Number: US-HORIZON THERAPEUTICS-HZN-2023-001212

PATIENT
  Age: 51 Year
  Sex: Female

DRUGS (35)
  1. TEPEZZA [Suspect]
     Active Substance: TEPROTUMUMAB-TRBW
     Indication: Endocrine ophthalmopathy
     Dosage: 1680 MILLIGRAM, Q3WK
     Route: 042
     Dates: start: 20201104, end: 20201208
  2. TEPEZZA [Suspect]
     Active Substance: TEPROTUMUMAB-TRBW
     Indication: Graves^ disease
     Dosage: 1680 MILLIGRAM, Q3WK
     Route: 042
     Dates: start: 20201208, end: 20210331
  3. TEPEZZA [Suspect]
     Active Substance: TEPROTUMUMAB-TRBW
     Dosage: 840 MILLIGRAM
     Route: 042
     Dates: start: 20210423
  4. TEPEZZA [Suspect]
     Active Substance: TEPROTUMUMAB-TRBW
     Dosage: 1680 MILLIGRAM, Q3WK
     Route: 042
     Dates: start: 20210514
  5. TEPEZZA [Suspect]
     Active Substance: TEPROTUMUMAB-TRBW
     Dosage: 1680 MILLIGRAM, Q3WK
     Route: 042
     Dates: start: 20210602
  6. TEPEZZA [Suspect]
     Active Substance: TEPROTUMUMAB-TRBW
     Dosage: 1680 MILLIGRAM, Q3WK
     Route: 042
     Dates: start: 20210917
  7. TEPEZZA [Suspect]
     Active Substance: TEPROTUMUMAB-TRBW
     Dosage: 1980 MILLIGRAM, Q3WK
     Route: 042
     Dates: start: 2022
  8. ACETAMINOPHEN [Concomitant]
     Active Substance: ACETAMINOPHEN
     Dosage: 500 MILLIGRAM, BID
     Route: 048
  9. ENTOCORT EC [Concomitant]
     Active Substance: BUDESONIDE
     Dosage: 3 MILLIGRAM, QD
     Route: 048
  10. CILOXAN [Concomitant]
     Active Substance: CIPROFLOXACIN HYDROCHLORIDE
     Dosage: 1 DROP, QID
     Route: 047
  11. BENADRYL [Concomitant]
     Active Substance: DIPHENHYDRAMINE HYDROCHLORIDE
     Indication: Anaphylactic reaction
     Dosage: 50 MILLIGRAM PER MILLILITRE
     Route: 042
  12. EPINEPHRINE [Concomitant]
     Active Substance: EPINEPHRINE
     Indication: Anaphylactic reaction
     Dosage: 0.3 MILLILITER
     Route: 065
  13. FISH OIL [Concomitant]
     Active Substance: FISH OIL
     Dosage: 1200 MILLIGRAM
     Route: 048
  14. FOLATE SODIUM [Concomitant]
     Active Substance: FOLATE SODIUM
     Dosage: 1 MILLIGRAM, QD
     Route: 048
  15. TIROSINT [Concomitant]
     Active Substance: LEVOTHYROXINE SODIUM
     Indication: Hypothyroidism
     Dosage: 125 MICROGRAM, QD
     Route: 048
  16. MAGNESIUM [Concomitant]
     Active Substance: MAGNESIUM
     Dosage: 300 MILLIGRAM
     Route: 048
  17. VITAMINS [Concomitant]
     Active Substance: VITAMINS
     Dosage: UNK, QD
     Route: 048
  18. OMEPRAZOLE [Concomitant]
     Active Substance: OMEPRAZOLE
     Dosage: UNK
     Route: 048
  19. SODIUM CHLORIDE [Concomitant]
     Active Substance: SODIUM CHLORIDE
     Indication: Electrolyte imbalance
     Dosage: UNK
     Route: 065
  20. TIZANIDINE [Concomitant]
     Active Substance: TIZANIDINE
     Indication: Musculoskeletal pain
     Dosage: 4 MILLIGRAM
     Route: 048
  21. VITAMIN D3 [Concomitant]
     Active Substance: CHOLECALCIFEROL
     Dosage: 125 MICROGRAM
     Route: 048
  22. AMBIEN [Concomitant]
     Active Substance: ZOLPIDEM TARTRATE
     Dosage: 5 MILLIGRAM, QD
     Route: 048
  23. SYSTANE (HYPROMELLOSE 2910 (4000 MPA.S)) [Concomitant]
     Active Substance: HYPROMELLOSE 2910 (4000 MPA.S)
     Dosage: UNK UNK, QID
     Route: 065
  24. GENTEAL MILD [Concomitant]
     Active Substance: HYPROMELLOSE 2910 (4000 MPA.S)
     Dosage: UNK UNK, QD (BEDTIME)
     Route: 065
  25. METHYLPREDNISOLONE SODIUM SUCCINATE [Concomitant]
     Active Substance: METHYLPREDNISOLONE SODIUM SUCCINATE
     Dosage: UNK
     Route: 065
  26. NORTRIPTYLINE [Concomitant]
     Active Substance: NORTRIPTYLINE
     Dosage: 10 MILLIGRAM, QD (TAPER AS DIRECTED )
     Route: 065
  27. DIETARY SUPPLEMENT [Concomitant]
     Active Substance: DIETARY SUPPLEMENT
     Dosage: UNK
     Route: 065
  28. ACETAMINOPHEN [Concomitant]
     Active Substance: ACETAMINOPHEN
     Dosage: UNK
     Route: 065
  29. TOPIRAMATE [Concomitant]
     Active Substance: TOPIRAMATE
  30. COENZYME Q10 [Concomitant]
     Active Substance: DIETARY SUPPLEMENT\UBIDECARENONE
     Dosage: 100 MILLIGRAM
     Route: 048
  31. XIIDRA [Concomitant]
     Active Substance: LIFITEGRAST
     Dosage: 1 DROP, BID
     Route: 047
  32. PROPARACAINE [Concomitant]
     Active Substance: PROPARACAINE
     Dosage: 1 DROP
     Route: 047
  33. FLUORESCEIN [Concomitant]
     Active Substance: FLUORESCEIN
     Dosage: UNK
     Route: 047
  34. REFRESH CLASSIC [Concomitant]
     Active Substance: POLYVINYL ALCOHOL\POVIDONE
     Dosage: UNK
     Route: 065
  35. METHYLPREDNISOLONE [Concomitant]
     Active Substance: METHYLPREDNISOLONE
     Dosage: UNK
     Route: 065

REACTIONS (41)
  - Physical disability [Not Recovered/Not Resolved]
  - Deafness permanent [Not Recovered/Not Resolved]
  - Anxiety [Not Recovered/Not Resolved]
  - Breakthrough pain [Unknown]
  - Concomitant disease aggravated [Unknown]
  - Decreased appetite [Unknown]
  - Diplopia [Not Recovered/Not Resolved]
  - Dry eye [Recovering/Resolving]
  - Dry mouth [Unknown]
  - Emotional distress [Not Recovered/Not Resolved]
  - Epistaxis [Unknown]
  - Eye pain [Unknown]
  - Gastrointestinal disorder [Unknown]
  - Quality of life decreased [Not Recovered/Not Resolved]
  - Injury [Not Recovered/Not Resolved]
  - Nasal dryness [Unknown]
  - Nystagmus [Unknown]
  - Off label use [Unknown]
  - Pain [Not Recovered/Not Resolved]
  - Paraesthesia [Unknown]
  - Trichorrhexis [Unknown]
  - Antinuclear antibody positive [Unknown]
  - Blood cholesterol increased [Unknown]
  - Low density lipoprotein increased [Unknown]
  - Visual impairment [Unknown]
  - Weight increased [Unknown]
  - Pruritus [Unknown]
  - Rash [Unknown]
  - Blepharitis [Unknown]
  - Conjunctivitis allergic [Unknown]
  - Trichiasis [Unknown]
  - Dyspepsia [Unknown]
  - Haemorrhagic diathesis [Unknown]
  - Corneal abrasion [Recovered/Resolved]
  - Weight decreased [Unknown]
  - COVID-19 [Unknown]
  - Diarrhoea [Unknown]
  - Fatigue [Unknown]
  - Headache [Unknown]
  - Blood glucose increased [Unknown]
  - Dry skin [Unknown]

NARRATIVE: CASE EVENT DATE: 20210101
